FAERS Safety Report 7523462-X (Version None)
Quarter: 2011Q2

REPORT INFORMATION
  Report Type: 
  Country: None (occurrence: None)
  Receive Date: 20110603
  Receipt Date: 20110531
  Transmission Date: 20111010
  Serious: Yes (Death)
  Sender: FDA-Public Use
  Company Number: PHHY2010MX59389

PATIENT
  Sex: Male

DRUGS (1)
  1. EXELON [Suspect]
     Indication: DEMENTIA ALZHEIMER'S TYPE
     Dosage: 1 PATCH (5 CM2) DAILY
     Route: 062
     Dates: start: 20100303

REACTIONS (3)
  - DIABETES MELLITUS [None]
  - DIABETIC GANGRENE [None]
  - DIABETIC FOOT [None]
